FAERS Safety Report 7990164-5 (Version None)
Quarter: 2011Q4

REPORT INFORMATION
  Report Type: 
  Country: None (occurrence: None)
  Receive Date: 20111219
  Receipt Date: 20111025
  Transmission Date: 20120403
  Serious: No
  Sender: FDA-Public Use
  Company Number: US-ASTRAZENECA-2009SE13729

PATIENT
  Age: 71 Year
  Sex: Male
  Weight: 90.7 kg

DRUGS (7)
  1. WARFARIN SODIUM [Concomitant]
  2. CRESTOR [Suspect]
     Route: 048
     Dates: start: 20090701
  3. COREG [Concomitant]
  4. CRESTOR [Suspect]
     Indication: BLOOD CHOLESTEROL INCREASED
     Route: 048
     Dates: start: 20080101
  5. NIASPAN [Concomitant]
  6. CRESTOR [Suspect]
     Route: 048
  7. CARDIZEM [Concomitant]

REACTIONS (5)
  - VERY LOW DENSITY LIPOPROTEIN INCREASED [None]
  - VENTRICULAR TACHYCARDIA [None]
  - THERAPEUTIC RESPONSE UNEXPECTED [None]
  - HIGH DENSITY LIPOPROTEIN DECREASED [None]
  - VENTRICULAR EXTRASYSTOLES [None]
